FAERS Safety Report 24802024 (Version 3)
Quarter: 2025Q3

REPORT INFORMATION
  Report Type: Spontaneous
  Country: JP (occurrence: JP)
  Receive Date: 20250102
  Receipt Date: 20250702
  Transmission Date: 20251021
  Serious: Yes (Death)
  Sender: JOHNSON AND JOHNSON
  Company Number: JP-JNJFOC-20241265908

PATIENT
  Age: 65 Year
  Sex: Female

DRUGS (5)
  1. OPSUMIT [Suspect]
     Active Substance: MACITENTAN
     Indication: Pulmonary arterial hypertension
     Dosage: 02-DEC-2024
     Route: 048
     Dates: end: 20241202
  2. UPTRAVI [Suspect]
     Active Substance: SELEXIPAG
     Indication: Pulmonary arterial hypertension
     Dosage: 02-DEC-2024
     Route: 048
     Dates: start: 20240119, end: 20241202
  3. UPTRAVI [Suspect]
     Active Substance: SELEXIPAG
     Dosage: 02-DEC-2024
     Route: 048
     Dates: start: 20240119, end: 20241202
  4. ADCIRCA [Concomitant]
     Active Substance: TADALAFIL
     Indication: Pulmonary arterial hypertension
     Dosage: 02-DEC-2024
     Route: 048
     Dates: end: 20241202
  5. TADALAFIL [Concomitant]
     Active Substance: TADALAFIL
     Indication: Product used for unknown indication
     Route: 048

REACTIONS (2)
  - Influenza [Fatal]
  - Pneumonia influenzal [Fatal]

NARRATIVE: CASE EVENT DATE: 20241201
